FAERS Safety Report 14101241 (Version 1)
Quarter: 2017Q4

REPORT INFORMATION
  Report Type: Spontaneous
  Country: US (occurrence: None)
  Receive Date: 20171017
  Receipt Date: 20171017
  Transmission Date: 20180321
  Serious: Yes (Hospitalization)
  Sender: FDA-Public Use
  Company Number: None

PATIENT
  Age: 76 Year
  Sex: Female
  Weight: 50.35 kg

DRUGS (1)
  1. TARCEVA [Suspect]
     Active Substance: ERLOTINIB HYDROCHLORIDE
     Indication: NON-SMALL CELL LUNG CANCER
     Dosage: 2ND DATE IS PARTIALLY ILLEGIBLE
     Route: 048
     Dates: start: 20170921, end: 201710

REACTIONS (3)
  - Drug dose omission [None]
  - Confusional state [None]
  - Bacterial infection [None]

NARRATIVE: CASE EVENT DATE: 20171005
